FAERS Safety Report 8613733-8 (Version None)
Quarter: 2012Q3

REPORT INFORMATION
  Report Type: 
  Country: None (occurrence: None)
  Receive Date: 20120823
  Receipt Date: 20120814
  Transmission Date: 20120928
  Serious: Yes (Hospitalization)
  Sender: FDA-Public Use
  Company Number: US-BIOGENIDEC-2012BI028702

PATIENT
  Age: 35 Year
  Sex: Female

DRUGS (1)
  1. TYSABRI [Suspect]
     Indication: MULTIPLE SCLEROSIS
     Route: 042
     Dates: start: 20080211

REACTIONS (5)
  - VOMITING [None]
  - NAUSEA [None]
  - GASTROENTERITIS VIRAL [None]
  - DIARRHOEA [None]
  - HEPATIC ENZYME INCREASED [None]
